FAERS Safety Report 4286199-9 (Version None)
Quarter: 2004Q1

REPORT INFORMATION
  Report Type: 
  Country: None (occurrence: None)
  Receive Date: 20040204
  Receipt Date: 20040204
  Transmission Date: 20041129
  Serious: No
  Sender: FDA-Public Use
  Company Number: None

PATIENT
  Age: 66 Year
  Sex: Female
  Weight: 72.5755 kg

DRUGS (3)
  1. DILAUDID [Suspect]
     Indication: PAIN
     Dosage: 2 MG Q 4 - 6 HRS PO
     Route: 048
  2. CLINDAMYCIN HCL [Suspect]
     Indication: LOCALISED INFECTION
     Dosage: 300 MG BID PO
     Route: 048
  3. CLINDAMYCIN HCL [Suspect]
     Indication: SKIN ULCER
     Dosage: 300 MG BID PO
     Route: 048

REACTIONS (4)
  - HEADACHE [None]
  - PHARMACEUTICAL PRODUCT COMPLAINT [None]
  - RASH [None]
  - VOMITING [None]
